FAERS Safety Report 4903128-2 (Version None)
Quarter: 2006Q1

REPORT INFORMATION
  Report Type: 
  Country: None (occurrence: None)
  Receive Date: 20060207
  Receipt Date: 20060127
  Transmission Date: 20060701
  Serious: Yes (Other)
  Sender: FDA-Public Use
  Company Number: DE-ROCHE-433939

PATIENT
  Age: 23 Year
  Sex: Female

DRUGS (3)
  1. PEGASYS [Suspect]
     Indication: HEPATITIS C
     Route: 065
  2. COPEGUS [Suspect]
     Indication: HEPATITIS C
     Route: 065
  3. AMANTADINE HCL [Suspect]
     Indication: HEPATITIS C
     Route: 065

REACTIONS (2)
  - RENAL FAILURE [None]
  - RENAL FAILURE ACUTE [None]
